FAERS Safety Report 12996579 (Version 4)
Quarter: 2016Q4

REPORT INFORMATION
  Report Type: Spontaneous
  Country: IL (occurrence: IL)
  Receive Date: 20161204
  Receipt Date: 20161227
  Transmission Date: 20170207
  Serious: Yes (Hospitalization, Other)
  Sender: FDA-Public Use
  Company Number: IL-GLAXOSMITHKLINE-IL2016GSK175458

PATIENT
  Age: 17 Year
  Sex: Female

DRUGS (3)
  1. RELVAR ELLIPTA [Suspect]
     Active Substance: FLUTICASONE FUROATE\VILANTEROL TRIFENATATE
     Indication: ASTHMA
     Dosage: 92 UG, UNK,MCG
     Route: 055
     Dates: start: 201611, end: 201611
  2. MOXYPEN [Suspect]
     Active Substance: AMOXICILLIN
     Indication: LARYNGITIS
     Dosage: UNK
     Dates: start: 201611
  3. SYMBICORT [Concomitant]
     Active Substance: BUDESONIDE\FORMOTEROL FUMARATE DIHYDRATE
     Indication: ASTHMA
     Dosage: UNK
     Dates: end: 201611

REACTIONS (11)
  - Rash [Recovered/Resolved]
  - Munchausen^s syndrome [Recovered/Resolved]
  - Face oedema [Recovered/Resolved]
  - Dermatitis contact [Recovered/Resolved]
  - Oedema [Recovered/Resolved]
  - Skin lesion [Recovered/Resolved]
  - Skin exfoliation [Not Recovered/Not Resolved]
  - Paraesthesia oral [Recovered/Resolved]
  - Dyspnoea [Recovered/Resolved]
  - Laryngeal oedema [Recovered/Resolved]
  - Bronchospasm [Recovered/Resolved]

NARRATIVE: CASE EVENT DATE: 201611
